FAERS Safety Report 5371974-X (Version None)
Quarter: 2007Q2

REPORT INFORMATION
  Report Type: 
  Country: None (occurrence: None)
  Receive Date: 20070627
  Receipt Date: 20070620
  Transmission Date: 20071010
  Serious: Yes (Hospitalization)
  Sender: FDA-Public Use
  Company Number: NO-ASTRAZENECA-2007SE03648

PATIENT
  Age: 75 Year
  Sex: Male

DRUGS (1)
  1. CASODEX [Suspect]
     Indication: NEOPLASM PROSTATE
     Route: 048
     Dates: start: 20050101

REACTIONS (4)
  - GRANULOCYTOPENIA [None]
  - NEUTROPENIA [None]
  - PANCYTOPENIA [None]
  - THROMBOCYTOPENIA [None]
